FAERS Safety Report 5616348-9 (Version None)
Quarter: 2008Q1

REPORT INFORMATION
  Report Type: 
  Country: None (occurrence: None)
  Receive Date: 20080205
  Receipt Date: 20080205
  Transmission Date: 20080703
  Serious: Yes (Other)
  Sender: FDA-Public Use
  Company Number: None

PATIENT
  Age: 42 Year
  Sex: Female
  Weight: 73.4827 kg

DRUGS (2)
  1. ESTRADIOL [Suspect]
     Indication: HOT FLUSH
     Dosage: DOSE PATCH WEEKLY
     Dates: start: 20070301
  2. ESTRADIOL [Suspect]
     Indication: MENOPAUSE
     Dosage: DOSE PATCH WEEKLY
     Dates: start: 20070301

REACTIONS (2)
  - APPLICATION SITE URTICARIA [None]
  - PHARMACEUTICAL PRODUCT COMPLAINT [None]
